FAERS Safety Report 10251819 (Version 1)
Quarter: 2014Q2

REPORT INFORMATION
  Report Type: Spontaneous
  Country: US (occurrence: US)
  Receive Date: 20140623
  Receipt Date: 20140623
  Transmission Date: 20141212
  Serious: No
  Sender: FDA-Public Use
  Company Number: US-AMGEN-USASP2014045383

PATIENT
  Age: 68 Year
  Sex: Female
  Weight: 81.18 kg

DRUGS (9)
  1. ENBREL [Suspect]
     Indication: PRODUCT USED FOR UNKNOWN INDICATION
     Dosage: UNK
     Route: 065
  2. METFORMIN [Concomitant]
     Indication: DIABETES MELLITUS
     Dosage: UNK
  3. CYCLOBENZAPRINE [Concomitant]
     Dosage: UNK
  4. VENLAFAXINE [Concomitant]
     Indication: DEPRESSION
     Dosage: UNK
  5. INDOMETHACIN                       /00003801/ [Concomitant]
     Indication: ARTHRALGIA
     Dosage: UNK
  6. OMEPRAZOLE [Concomitant]
     Indication: GASTROOESOPHAGEAL REFLUX DISEASE
     Dosage: UNK
  7. OMEGA 3                            /01333901/ [Concomitant]
     Indication: VITAMIN SUPPLEMENTATION
     Dosage: UNK
  8. FISH OIL [Concomitant]
     Indication: VITAMIN SUPPLEMENTATION
     Dosage: UNK
  9. VITAMIN B12                        /00056201/ [Concomitant]
     Indication: VITAMIN SUPPLEMENTATION
     Dosage: UNK

REACTIONS (1)
  - Drug ineffective [Unknown]
